FAERS Safety Report 6053250-5 (Version None)
Quarter: 2009Q1

REPORT INFORMATION
  Report Type: 
  Country: None (occurrence: None)
  Receive Date: 20090122
  Receipt Date: 20090109
  Transmission Date: 20090719
  Serious: Yes (Hospitalization)
  Sender: FDA-Public Use
  Company Number: DSA_33099_2009

PATIENT
  Age: 83 Year
  Sex: Female

DRUGS (8)
  1. ENALAPRIL MALEATE [Suspect]
     Indication: HYPERTENSION
     Dosage: 2.5 MG QD ORAL
     Route: 048
  2. DIGITOXIN INJ [Suspect]
     Indication: CARDIAC FAILURE
     Dosage: 0.07 MG QD ORAL
     Route: 048
  3. INDAPAMIDE [Suspect]
     Indication: HYPERTENSION
     Dosage: 1.5 MG QD ORAL
     Route: 048
  4. AMLODIPINE [Concomitant]
  5. SORTIS [Concomitant]
  6. INSULIN [Concomitant]
  7. MOXONIDINE [Concomitant]
  8. FALITHROM [Concomitant]

REACTIONS (4)
  - BRADYCARDIA [None]
  - DRUG INTERACTION [None]
  - GAMMA-GLUTAMYLTRANSFERASE DECREASED [None]
  - VOMITING [None]
